FAERS Safety Report 21136565 (Version 1)
Quarter: 2022Q3

REPORT INFORMATION
  Report Type: Spontaneous
  Country: US (occurrence: None)
  Receive Date: 20220726
  Receipt Date: 20220726
  Transmission Date: 20221027
  Serious: Yes (Hospitalization)
  Sender: FDA-Public Use
  Company Number: None

PATIENT
  Age: 46 Year
  Sex: Female

DRUGS (7)
  1. XELJANZ [Suspect]
     Active Substance: TOFACITINIB CITRATE
     Indication: Rheumatoid arthritis
     Dosage: TAKE 1 TABLET BY MOUTH TWICE DAILY
     Route: 048
     Dates: start: 20210730
  2. ALPRAZOLAM [Concomitant]
     Active Substance: ALPRAZOLAM
  3. LEVOTHYROXINE [Concomitant]
     Active Substance: LEVOTHYROXINE
  4. HYDROCHLOROTHIAZIDE\LOSARTAN POTASSIUM [Concomitant]
     Active Substance: HYDROCHLOROTHIAZIDE\LOSARTAN POTASSIUM
  5. Metoprol tar [Concomitant]
  6. Orphenadrine ER [Concomitant]
  7. SCOPOLAMINE [Concomitant]
     Active Substance: SCOPOLAMINE

REACTIONS (1)
  - Surgery [None]

NARRATIVE: CASE EVENT DATE: 20220404
